FAERS Safety Report 21383122 (Version 1)
Quarter: 2022Q3

REPORT INFORMATION
  Report Type: Spontaneous
  Country: US (occurrence: US)
  Receive Date: 20220927
  Receipt Date: 20220927
  Transmission Date: 20221027
  Serious: No
  Sender: FDA-Public Use
  Company Number: US-SA-SAC20220926001632

PATIENT
  Sex: Male
  Weight: 13 kg

DRUGS (1)
  1. DUPIXENT [Suspect]
     Active Substance: DUPILUMAB
     Indication: Dermatitis allergic
     Dosage: DOSE AND ROUTE PRESCRIBED: 200 MG - SUBCUTANEOUS INJECTION FREQUENCY: EVERY 4 WEEKS
     Route: 058

REACTIONS (2)
  - General physical health deterioration [Unknown]
  - Product use in unapproved indication [Unknown]
